FAERS Safety Report 24825429 (Version 3)
Quarter: 2025Q2

REPORT INFORMATION
  Report Type: Report from Study
  Country: US (occurrence: US)
  Receive Date: 20250109
  Receipt Date: 20250411
  Transmission Date: 20250716
  Serious: Yes (Other)
  Sender: TAIHO ONCOLOGY INC
  Company Number: US-TAIHO-2024_019641

PATIENT
  Sex: Female

DRUGS (1)
  1. INQOVI [Suspect]
     Active Substance: CEDAZURIDINE\DECITABINE
     Indication: Myelodysplastic syndrome
     Dosage: 135 MG (DECITABINE 35 MG + CEDAZURIDINE 100 MG) 1 TABLET DAILY FOR 5 DAYS EVERY 4 WEEKS; CYCLE UNKNO
     Route: 048

REACTIONS (1)
  - Disease progression [Unknown]
